FAERS Safety Report 20128960 (Version 3)
Quarter: 2023Q1

REPORT INFORMATION
  Report Type: Other
  Country: US (occurrence: None)
  Receive Date: 20211130
  Receipt Date: 20230315
  Transmission Date: 20230418
  Serious: No
  Sender: FDA-Public Use
  Company Number: US-ROCHE-2960501

PATIENT
  Age: 44 Year
  Sex: Male
  Weight: 106.69 kg

DRUGS (2)
  1. OCREVUS [Suspect]
     Active Substance: OCRELIZUMAB
     Indication: Relapsing multiple sclerosis
     Dosage: 300 MG ON DAY 1 AND DAY 15
     Route: 042
     Dates: start: 2020
  2. TECFIDERA [Concomitant]
     Active Substance: DIMETHYL FUMARATE
     Indication: Multiple sclerosis

REACTIONS (2)
  - COVID-19 [Unknown]
  - Jaw disorder [Recovered/Resolved]

NARRATIVE: CASE EVENT DATE: 20221101
